FAERS Safety Report 7113094-X (Version None)
Quarter: 2010Q4

REPORT INFORMATION
  Report Type: 
  Country: None (occurrence: None)
  Receive Date: 20101119
  Receipt Date: 20101112
  Transmission Date: 20110411
  Serious: Yes (Other)
  Sender: FDA-Public Use
  Company Number: US-US-EMD SERONO, INC.-7010287

PATIENT
  Sex: Female
  Weight: 76 kg

DRUGS (4)
  1. REBIF [Suspect]
     Indication: MULTIPLE SCLEROSIS
     Route: 058
     Dates: start: 20021014
  2. TRAMADOL HCL [Concomitant]
     Indication: MULTIPLE SCLEROSIS
  3. AMANTADINE [Concomitant]
     Indication: MULTIPLE SCLEROSIS
  4. BACLOFEN [Concomitant]
     Indication: MULTIPLE SCLEROSIS

REACTIONS (9)
  - CARPAL TUNNEL SYNDROME [None]
  - FALL [None]
  - INTERVERTEBRAL DISC COMPRESSION [None]
  - NYSTAGMUS [None]
  - ROAD TRAFFIC ACCIDENT [None]
  - SKIN LACERATION [None]
  - SPINAL FRACTURE [None]
  - TRAUMATIC BRAIN INJURY [None]
  - VERTIGO [None]
